FAERS Safety Report 24812510 (Version 1)
Quarter: 2025Q1

REPORT INFORMATION
  Report Type: Report from Study
  Country: US (occurrence: US)
  Receive Date: 20250106
  Receipt Date: 20250106
  Transmission Date: 20250409
  Serious: Yes (Hospitalization)
  Sender: AMNEAL
  Company Number: US-AMNEAL PHARMACEUTICALS-2024-AMRX-04763

PATIENT
  Age: 81 Year
  Sex: Male

DRUGS (1)
  1. OPICAPONE [Suspect]
     Active Substance: OPICAPONE
     Indication: Product used for unknown indication
     Dosage: 1 CAPSULES, 1 /DAY
     Route: 048

REACTIONS (3)
  - Infection [Unknown]
  - Pyrexia [Unknown]
  - Hallucination [Unknown]

NARRATIVE: CASE EVENT DATE: 20241226
